FAERS Safety Report 7646777-3 (Version None)
Quarter: 2011Q3

REPORT INFORMATION
  Report Type: 
  Country: None (occurrence: None)
  Receive Date: 20110801
  Receipt Date: 20110727
  Transmission Date: 20111222
  Serious: No
  Sender: FDA-Public Use
  Company Number: US-PFIZER INC-2011164760

PATIENT
  Sex: Female

DRUGS (2)
  1. DEPO-TESTOSTERONE [Suspect]
     Indication: OFF LABEL USE
     Dosage: 200 MG, UNK
     Dates: start: 20110101
  2. DEPO-TESTOSTERONE [Suspect]
     Indication: BLOOD TESTOSTERONE DECREASED

REACTIONS (1)
  - ALOPECIA [None]
